FAERS Safety Report 5027780-9 (Version None)
Quarter: 2006Q2

REPORT INFORMATION
  Report Type: 
  Country: None (occurrence: None)
  Receive Date: 20060614
  Receipt Date: 20060614
  Transmission Date: 20061013
  Serious: Yes (Hospitalization)
  Sender: FDA-Public Use
  Company Number: None

PATIENT
  Sex: Female
  Weight: 49.3 kg

DRUGS (6)
  1. CYTARABINE [Suspect]
     Dosage: 70 MG
  2. DAUNORUBICIN HCL [Suspect]
     Dosage: 113.5 MG SEE IMAGE
  3. METHOTREXATE [Suspect]
     Dosage: 15 MG
  4. PEG-L -ASPARAGINASE (K-H) [Suspect]
     Dosage: 3750 UNIT
  5. PREDNISONE TAB [Suspect]
     Dosage: 1800 MG  SEE IMAGE
  6. VINCRISTINE SULFATE [Suspect]
     Dosage: 6 MG   SEE IMAGE

REACTIONS (3)
  - BRAIN OEDEMA [None]
  - CEREBRAL HAEMATOMA [None]
  - HAEMORRHAGE INTRACRANIAL [None]
